FAERS Safety Report 17570120 (Version 1)
Quarter: 2020Q1

REPORT INFORMATION
  Report Type: Spontaneous
  Country: US (occurrence: US)
  Receive Date: 20200323
  Receipt Date: 20200323
  Transmission Date: 20200409
  Serious: Yes (Hospitalization, Other)
  Sender: FDA-Public Use
  Company Number: US-BRISTOL-MYERS SQUIBB COMPANY-BMS-2020-023656

PATIENT
  Age: 67 Year
  Sex: Female
  Weight: 77.56 kg

DRUGS (2)
  1. APIXABAN [Suspect]
     Active Substance: APIXABAN
     Indication: INTRACARDIAC THROMBUS
     Dosage: 5 MILLIGRAM, BID
     Route: 065
     Dates: start: 2018
  2. LEVOTHYROXINE. [Concomitant]
     Active Substance: LEVOTHYROXINE
     Indication: THYROIDECTOMY
     Dosage: UNK
     Route: 065
     Dates: start: 2010

REACTIONS (3)
  - Intentional product use issue [Unknown]
  - Atrial fibrillation [Unknown]
  - Memory impairment [Unknown]

NARRATIVE: CASE EVENT DATE: 20190317
